FAERS Safety Report 5245645-4 (Version None)
Quarter: 2007Q1

REPORT INFORMATION
  Report Type: 
  Country: None (occurrence: None)
  Receive Date: 20070223
  Receipt Date: 20070219
  Transmission Date: 20070707
  Serious: Yes (Hospitalization)
  Sender: FDA-Public Use
  Company Number: US-ROXANE LABORATORIES, INC-2007-DE-01008GD

PATIENT
  Age: 47 Year
  Sex: Male

DRUGS (1)
  1. MORPHINE [Suspect]
     Indication: BACK PAIN
     Dosage: REQUIRED A LARGE INCREASE IN DAILY DOSING (BEFORE, THE DAILY DOSAGE WAS 32 MG)
     Route: 037

REACTIONS (3)
  - INFUSION SITE MASS [None]
  - INTRASPINAL ABSCESS [None]
  - STREPTOCOCCAL INFECTION [None]
